FAERS Safety Report 7393695-4 (Version None)
Quarter: 2011Q2

REPORT INFORMATION
  Report Type: 
  Country: None (occurrence: None)
  Receive Date: 20110405
  Receipt Date: 20110322
  Transmission Date: 20111010
  Serious: Yes (Hospitalization)
  Sender: FDA-Public Use
  Company Number: FI-JNJFOC-20110310107

PATIENT
  Age: 33 Year
  Sex: Male

DRUGS (2)
  1. CONCERTA [Suspect]
     Indication: ATTENTION DEFICIT/HYPERACTIVITY DISORDER
     Dosage: 54 MG DURING THE DAY AND 27 MG FOR THE NIGHT AS SLEEPING MEDICINE
     Route: 048
  2. CONCERTA [Suspect]
     Route: 048

REACTIONS (1)
  - CARDIAC FIBRILLATION [None]
